FAERS Safety Report 5604801-3 (Version None)
Quarter: 2008Q1

REPORT INFORMATION
  Report Type: 
  Country: None (occurrence: None)
  Receive Date: 20080128
  Receipt Date: 20080115
  Transmission Date: 20080703
  Serious: No
  Sender: FDA-Public Use
  Company Number: US-ELI_LILLY_AND_COMPANY-US200601005061

PATIENT
  Sex: Male
  Weight: 113.38 kg

DRUGS (24)
  1. ZYPREXA [Suspect]
     Indication: AGITATION
     Dosage: UNK, UNK
     Dates: start: 20000101
  2. ZYPREXA [Suspect]
     Dosage: 2.5 MG, AS NEEDED
     Route: 048
  3. ZYPREXA [Suspect]
     Dosage: 7.5 MG, DAILY (1/D)
     Route: 048
     Dates: start: 20030715, end: 20050608
  4. DEPAKOTE [Concomitant]
     Indication: BIPOLAR I DISORDER
     Dosage: 250 MG, 2/D
     Route: 048
     Dates: start: 19960101, end: 20020627
  5. DEPAKOTE ER [Concomitant]
     Indication: BIPOLAR I DISORDER
     Dosage: 1000 MG, 2/D
     Route: 048
     Dates: start: 20020627
  6. WELLBUTRIN SR [Concomitant]
     Indication: DEPRESSION
     Dosage: 100 MG, 2/D
     Route: 048
  7. BUSPAR [Concomitant]
     Indication: ANXIETY
     Dosage: 15 MG, 4/D
     Route: 048
     Dates: end: 20020101
  8. PROZAC [Concomitant]
     Indication: DEPRESSION
     Dosage: 90 MG, WEEKLY (1/W)
     Route: 048
     Dates: start: 20020703, end: 20020910
  9. PROZAC [Concomitant]
     Dosage: 20 MG, EACH MORNING
     Route: 048
     Dates: start: 20020910, end: 20021014
  10. PROZAC [Concomitant]
     Dosage: 40 MG, EACH MORNING
     Route: 048
     Dates: start: 20021014, end: 20030715
  11. PROZAC [Concomitant]
     Dosage: 60 MG, EACH MORNING
     Route: 048
     Dates: start: 20030715
  12. NEURONTIN [Concomitant]
     Indication: MOOD SWINGS
     Dosage: 300 MG, EACH MORNING
     Route: 048
     Dates: start: 20030715
  13. NEURONTIN [Concomitant]
     Dosage: 600 MG, EACH EVENING
     Route: 048
     Dates: start: 20030715
  14. HYDROXYZINE [Concomitant]
     Indication: ANXIETY
     Dosage: 25 MG, AS NEEDED
     Route: 048
     Dates: start: 20020910, end: 20030101
  15. HYDROXYZINE [Concomitant]
     Dosage: 50 MG, AS NEEDED
     Route: 048
     Dates: start: 20020910, end: 20030101
  16. HYDROXYZINE [Concomitant]
     Dosage: 150 MG, DAILY (1/D)
     Route: 048
     Dates: start: 20030101
  17. HYDROXYZINE [Concomitant]
     Dosage: 150 MG, 2/D
     Route: 048
     Dates: start: 20030101
  18. ETHANOL [Concomitant]
     Route: 048
     Dates: start: 19950101
  19. ALBUTEROL [Concomitant]
     Indication: ASTHMA
     Route: 055
  20. AZMACORT [Concomitant]
     Indication: ASTHMA
     Route: 055
  21. VALIUM [Concomitant]
     Indication: ANXIETY
     Dosage: 2.5 MG, AS NEEDED
     Route: 048
     Dates: start: 20030416
  22. VALIUM [Concomitant]
     Dosage: 10 MG, AS NEEDED
     Route: 048
  23. EFFEXOR XR [Concomitant]
     Dosage: 150 MG, DAILY (1/D)
     Route: 048
  24. EFFEXOR XR [Concomitant]
     Dosage: 300 MG, DAILY (1/D)
     Route: 048

REACTIONS (6)
  - BLOOD GLUCOSE INCREASED [None]
  - BLOOD TRIGLYCERIDES INCREASED [None]
  - EOSINOPHIL COUNT INCREASED [None]
  - HYPERPHAGIA [None]
  - SOMNOLENCE [None]
  - WEIGHT INCREASED [None]
